FAERS Safety Report 8302923-X (Version None)
Quarter: 2012Q2

REPORT INFORMATION
  Report Type: 
  Country: None (occurrence: None)
  Receive Date: 20120420
  Receipt Date: 20120416
  Transmission Date: 20120825
  Serious: Yes (Death, Disabling, Other)
  Sender: FDA-Public Use
  Company Number: GB-ROCHE-1037125

PATIENT
  Sex: Male

DRUGS (2)
  1. LUCENTIS [Suspect]
     Route: 050
     Dates: start: 20100301, end: 20100301
  2. LUCENTIS [Suspect]
     Indication: AGE-RELATED MACULAR DEGENERATION
     Route: 050
     Dates: start: 20090101

REACTIONS (4)
  - PROSTATE CANCER METASTATIC [None]
  - VISUAL ACUITY REDUCED [None]
  - SUBRETINAL FIBROSIS [None]
  - AGE-RELATED MACULAR DEGENERATION [None]
